FAERS Safety Report 18045645 (Version 1)
Quarter: 2020Q3

REPORT INFORMATION
  Report Type: Spontaneous
  Country: BE (occurrence: BE)
  Receive Date: 20200720
  Receipt Date: 20200720
  Transmission Date: 20201103
  Serious: Yes (Other)
  Sender: FDA-Public Use
  Company Number: NVSC2020BE199965

PATIENT
  Age: 57 Year
  Sex: Male

DRUGS (8)
  1. TEBRAZID [Suspect]
     Active Substance: PYRAZINAMIDE
     Indication: TUBERCULOSIS
  2. RIFADINE [Suspect]
     Active Substance: RIFAMPIN
     Indication: LYMPHADENITIS BACTERIAL
     Dosage: UNK
     Route: 065
  3. RIFADINE [Suspect]
     Active Substance: RIFAMPIN
     Indication: TUBERCULOSIS
  4. ISONIAZID. [Suspect]
     Active Substance: ISONIAZID
     Indication: TUBERCULOSIS
  5. TEBRAZID [Suspect]
     Active Substance: PYRAZINAMIDE
     Indication: LYMPHADENITIS BACTERIAL
     Dosage: UNK
     Route: 065
  6. MYAMBUTOL [Suspect]
     Active Substance: ETHAMBUTOL HYDROCHLORIDE
     Indication: LYMPHADENITIS BACTERIAL
     Dosage: UNK
     Route: 065
  7. ISONIAZID. [Suspect]
     Active Substance: ISONIAZID
     Indication: LYMPHADENITIS BACTERIAL
     Dosage: UNK
     Route: 065
  8. MYAMBUTOL [Suspect]
     Active Substance: ETHAMBUTOL HYDROCHLORIDE
     Indication: TUBERCULOSIS

REACTIONS (1)
  - Encephalopathy [Unknown]
